FAERS Safety Report 25836356 (Version 1)
Quarter: 2025Q3

REPORT INFORMATION
  Report Type: Spontaneous
  Country: CN (occurrence: CN)
  Receive Date: 20250923
  Receipt Date: 20250923
  Transmission Date: 20251021
  Serious: Yes (Other)
  Sender: BAYER HEALTHCARE PHARMACEUTICALS INC.
  Company Number: CN-BAYER-2025A125685

PATIENT
  Age: 54 Year
  Sex: Female
  Weight: 51 kg

DRUGS (3)
  1. ULTRAVIST [Suspect]
     Active Substance: IOPROMIDE
     Indication: Computerised tomogram head
     Route: 042
     Dates: start: 20250915, end: 20250915
  2. ULTRAVIST [Suspect]
     Active Substance: IOPROMIDE
     Indication: Arteriogram carotid
     Route: 042
     Dates: start: 20250915, end: 20250915
  3. ULTRAVIST [Suspect]
     Active Substance: IOPROMIDE
     Indication: Transient ischaemic attack

REACTIONS (2)
  - Muscle rigidity [Recovering/Resolving]
  - Blood pressure increased [None]

NARRATIVE: CASE EVENT DATE: 20250915
